FAERS Safety Report 7686928-8 (Version None)
Quarter: 2011Q3

REPORT INFORMATION
  Report Type: 
  Country: None (occurrence: None)
  Receive Date: 20110816
  Receipt Date: 20110809
  Transmission Date: 20111222
  Serious: Yes (Other)
  Sender: FDA-Public Use
  Company Number: GB-TEVA-296199ISR

PATIENT
  Sex: Male

DRUGS (3)
  1. DACARBAZINE [Suspect]
     Indication: MALIGNANT MELANOMA
     Route: 042
     Dates: start: 20100621
  2. AMITRIPTYLINE HCL [Concomitant]
     Dates: start: 20100510
  3. ZOPICLONE [Concomitant]
     Dates: start: 20100510

REACTIONS (1)
  - DEEP VEIN THROMBOSIS [None]
